FAERS Safety Report 9297419 (Version 1)
Quarter: 2013Q2

REPORT INFORMATION
  Report Type: Spontaneous
  Country: US (occurrence: None)
  Receive Date: 20130517
  Receipt Date: 20130517
  Transmission Date: 20140414
  Serious: Yes (Other)
  Sender: FDA-Public Use
  Company Number: None

PATIENT
  Age: 58 Year
  Sex: Male
  Weight: 63.5 kg

DRUGS (5)
  1. CLOZAPINE [Suspect]
     Indication: SCHIZOPHRENIA, PARANOID TYPE
     Dosage: 300MG TOTAL DAILY DOSE
     Dates: start: 20130403, end: 20130507
  2. LOSARTAN [Concomitant]
  3. TIOTROPUM BROMIDE [Concomitant]
  4. TRAZODONE ALBUTERIAL IAH [Concomitant]
  5. DOCUSATE SODIUM [Concomitant]

REACTIONS (2)
  - Agranulocytosis [None]
  - Neutropenia [None]
